FAERS Safety Report 5947762-X (Version None)
Quarter: 2008Q4

REPORT INFORMATION
  Report Type: 
  Country: None (occurrence: None)
  Receive Date: 20081111
  Receipt Date: 20081105
  Transmission Date: 20090506
  Serious: Yes (Hospitalization)
  Sender: FDA-Public Use
  Company Number: US-JNJFOC-20081101538

PATIENT
  Sex: Female

DRUGS (15)
  1. DURAGESIC-100 [Suspect]
     Indication: SPINAL COLUMN STENOSIS
     Route: 062
  2. FENTANYL TRANSDERMAL SYSTEM [Suspect]
     Indication: SPINAL COLUMN STENOSIS
     Route: 062
  3. LEVAPRO [Concomitant]
     Route: 048
  4. FLEXERIL [Concomitant]
     Route: 048
  5. PHENERGAN HCL [Concomitant]
     Route: 048
  6. ATIVAN [Concomitant]
     Route: 048
  7. VALIUM [Concomitant]
     Route: 048
  8. DARVOCET-N 100 [Concomitant]
     Route: 048
  9. ALLEGRA [Concomitant]
     Route: 048
  10. ACTONEL [Concomitant]
     Route: 048
  11. HUMULIN [Concomitant]
     Route: 058
  12. PRILOSEC [Concomitant]
     Route: 048
  13. ALBUTEROL [Concomitant]
     Route: 048
  14. ADVAN [Concomitant]
     Route: 048
  15. FOLIC ACID [Concomitant]
     Route: 048

REACTIONS (5)
  - DYSKINESIA [None]
  - FALL [None]
  - INAPPROPRIATE SCHEDULE OF DRUG ADMINISTRATION [None]
  - INCORRECT DRUG ADMINISTRATION DURATION [None]
  - LUNG ABSCESS [None]
